FAERS Safety Report 8472618-0 (Version None)
Quarter: 2012Q2

REPORT INFORMATION
  Report Type: 
  Country: None (occurrence: None)
  Receive Date: 20120627
  Receipt Date: 20110718
  Transmission Date: 20120825
  Serious: Yes (Other)
  Sender: FDA-Public Use
  Company Number: US-AMGEN-USASP2011036391

PATIENT
  Age: 35 Year

DRUGS (1)
  1. EPOGEN [Suspect]
     Indication: RENAL FAILURE
     Dosage: 18000 UNIT, UNK
     Dates: start: 20110401

REACTIONS (2)
  - DRUG INEFFECTIVE [None]
  - APLASIA PURE RED CELL [None]
